FAERS Safety Report 4557737-3 (Version None)
Quarter: 2005Q1

REPORT INFORMATION
  Report Type: 
  Country: None (occurrence: None)
  Receive Date: 20050103
  Receipt Date: 20040804
  Transmission Date: 20050727
  Serious: Yes (Other)
  Sender: FDA-Public Use
  Company Number: 2004UW16520

PATIENT
  Age: 77 Year
  Sex: Female
  Weight: 55.7924 kg

DRUGS (4)
  1. CRESTOR [Suspect]
     Indication: BLOOD CHOLESTEROL INCREASED
     Dosage: 10 MG QD PO
     Route: 048
  2. CRESTOR [Suspect]
     Indication: BLOOD CHOLESTEROL INCREASED
     Dosage: 10 MG QD PO
     Route: 048
     Dates: start: 20040731
  3. ASPIRIN [Concomitant]
  4. VITAMINS [Concomitant]

REACTIONS (3)
  - DIZZINESS [None]
  - HEADACHE [None]
  - HYPOAESTHESIA [None]
